FAERS Safety Report 4771731-9 (Version None)
Quarter: 2005Q3

REPORT INFORMATION
  Report Type: 
  Country: None (occurrence: None)
  Receive Date: 20050916
  Receipt Date: 20050907
  Transmission Date: 20060218
  Serious: Yes (Other)
  Sender: FDA-Public Use
  Company Number: JP-ROCHE-416832

PATIENT
  Age: 58 Year
  Sex: Male

DRUGS (9)
  1. PANALDINE [Suspect]
     Indication: THROMBOSIS PROPHYLAXIS
     Route: 048
     Dates: start: 20050731, end: 20050807
  2. ASPIRIN [Suspect]
     Indication: THROMBOSIS PROPHYLAXIS
     Route: 048
     Dates: start: 20050731, end: 20050807
  3. AMLODIN [Suspect]
     Indication: HYPERTENSION
     Route: 048
     Dates: start: 20050805, end: 20050807
  4. RADICUT [Concomitant]
     Route: 041
     Dates: start: 20050726, end: 20050807
  5. SODIUM CHLORIDE [Concomitant]
     Dosage: DRUG REPORTED AS SHEISHOKU.
     Route: 041
     Dates: start: 20050726, end: 20050807
  6. SELBEX [Concomitant]
     Indication: GASTRITIS
     Route: 048
     Dates: start: 20050731, end: 20050807
  7. LOW MOLECULAR DEXTRAN [Concomitant]
     Dosage: DRUG REPORTED AS LOW MOLECULAR DEXTRAN L.
  8. NOVO-HEPARIN [Concomitant]
  9. SOLITA-T3 [Concomitant]

REACTIONS (3)
  - ERYTHEMA [None]
  - FLUSHING [None]
  - RASH PRURITIC [None]
